FAERS Safety Report 5528512-8 (Version None)
Quarter: 2007Q4

REPORT INFORMATION
  Report Type: 
  Country: None (occurrence: None)
  Receive Date: 20071123
  Receipt Date: 20071106
  Transmission Date: 20080405
  Serious: Yes (Life-Threatening)
  Sender: FDA-Public Use
  Company Number: 8028005

PATIENT
  Age: 39 Year
  Sex: Male
  Weight: 68 kg

DRUGS (3)
  1. KEPPRA [Suspect]
     Indication: EPILEPSY
     Dosage: 250 MG 2/D PO
     Route: 048
     Dates: start: 20070401, end: 20070606
  2. KEPPRA [Suspect]
     Indication: EPILEPSY
     Dosage: 750 MG 2/D PO
     Route: 048
     Dates: start: 20070607
  3. KEPPRA [Suspect]
     Indication: EPILEPSY
     Dosage: 500 MG 2/D PO
     Route: 048

REACTIONS (3)
  - DEPRESSION [None]
  - SELF-INJURIOUS IDEATION [None]
  - SUICIDAL IDEATION [None]
